FAERS Safety Report 5354824-7 (Version None)
Quarter: 2007Q2

REPORT INFORMATION
  Report Type: 
  Country: None (occurrence: None)
  Receive Date: 20070612
  Receipt Date: 20070531
  Transmission Date: 20071010
  Serious: Yes (Hospitalization)
  Sender: FDA-Public Use
  Company Number: IL-PFIZER INC-2006148875

PATIENT
  Age: 6 Year
  Sex: Male

DRUGS (3)
  1. AZENIL [Suspect]
     Indication: TONSILLITIS STREPTOCOCCAL
  2. ACAMOL [Concomitant]
  3. NUROFEN [Concomitant]

REACTIONS (2)
  - HALLUCINATION [None]
  - HEADACHE [None]
